FAERS Safety Report 23618627 (Version 1)
Quarter: 2024Q1

REPORT INFORMATION
  Report Type: Spontaneous
  Country: US (occurrence: None)
  Receive Date: 20240311
  Receipt Date: 20240311
  Transmission Date: 20240409
  Serious: Yes (Other)
  Sender: FDA-Public Use
  Company Number: None

PATIENT
  Age: 64 Year
  Sex: Female
  Weight: 61.65 kg

DRUGS (5)
  1. CANNABIDIOL\HERBALS [Suspect]
     Active Substance: CANNABIDIOL\HERBALS
     Indication: Post-traumatic stress disorder
     Dates: start: 20231221, end: 20240113
  2. METOPROLOL [Concomitant]
     Active Substance: METOPROLOL
  3. CLONIDINE [Concomitant]
  4. LOSARTAN [Concomitant]
     Active Substance: LOSARTAN
  5. VITAMINS [Concomitant]
     Active Substance: VITAMINS

REACTIONS (7)
  - Product use complaint [None]
  - Product communication issue [None]
  - Manufacturing materials issue [None]
  - Reaction to excipient [None]
  - Blood pressure increased [None]
  - Documented hypersensitivity to administered product [None]
  - Polymers allergy [None]

NARRATIVE: CASE EVENT DATE: 20240113
